FAERS Safety Report 9743321 (Version 1)
Quarter: 2013Q4

REPORT INFORMATION
  Report Type: Report from Study
  Country: US (occurrence: US)
  Receive Date: 20131210
  Receipt Date: 20131210
  Transmission Date: 20140711
  Serious: Yes (Other)
  Sender: FDA-Public Use
  Company Number: US-US-EMD SERONO, INC.-7255557

PATIENT
  Sex: Female

DRUGS (1)
  1. REBIF [Suspect]
     Indication: MULTIPLE SCLEROSIS
     Dates: start: 20051025

REACTIONS (4)
  - Parathyroid tumour [Unknown]
  - Hyperglycaemia [Unknown]
  - Hyperthyroidism [Unknown]
  - Injection site erythema [Not Recovered/Not Resolved]
